FAERS Safety Report 7383668-X (Version None)
Quarter: 2011Q1

REPORT INFORMATION
  Report Type: 
  Country: None (occurrence: None)
  Receive Date: 20110330
  Receipt Date: 20110323
  Transmission Date: 20110831
  Serious: Yes (Hospitalization)
  Sender: FDA-Public Use
  Company Number: JP-JNJFOC-20110206597

PATIENT
  Age: 49 Year
  Sex: Female

DRUGS (7)
  1. RISPERDAL [Suspect]
     Route: 048
  2. TRIHEXYPHENIDYL HCL [Concomitant]
     Indication: EXTRAPYRAMIDAL DISORDER
     Route: 048
  3. RISPERDAL [Suspect]
     Indication: SCHIZOPHRENIA
     Route: 048
  4. HALOPERIDOL [Concomitant]
     Route: 042
  5. VALPROATE SODIUM [Concomitant]
     Route: 065
  6. RISPERDAL [Suspect]
     Route: 048
  7. RISPERDAL [Suspect]
     Route: 048

REACTIONS (6)
  - HALLUCINATION, AUDITORY [None]
  - PSYCHOMOTOR HYPERACTIVITY [None]
  - SOMNOLENCE [None]
  - DELUSION [None]
  - AGITATION [None]
  - TREATMENT NONCOMPLIANCE [None]
